FAERS Safety Report 8763798 (Version 1)
Quarter: 2012Q4

REPORT INFORMATION
  Report Type: 
  Country: US (occurrence: US)
  Receive Date: 20120831
  Receipt Date: 20120831
  Transmission Date: 20130627
  Serious: Yes (Other)
  Sender: FDA-Public Use
  Company Number: US-PFIZER INC-2012210341

PATIENT
  Age: 44 Year
  Sex: Female
  Weight: 143 kg

DRUGS (3)
  1. ADVIL [Suspect]
     Dosage: UNK
  2. IBUPROFEN [Suspect]
     Dosage: UNK
  3. SYNTHROID [Concomitant]
     Indication: THYROID DISORDER
     Dosage: 0.125 mg, daily

REACTIONS (1)
  - Gastric bypass [Unknown]
